FAERS Safety Report 6863631-5 (Version None)
Quarter: 2010Q3

REPORT INFORMATION
  Report Type: 
  Country: None (occurrence: None)
  Receive Date: 20100720
  Receipt Date: 20100712
  Transmission Date: 20110219
  Serious: No
  Sender: FDA-Public Use
  Company Number: RB-13021-2010

PATIENT
  Sex: Female

DRUGS (1)
  1. SUBOXONE [Suspect]
     Indication: DRUG DEPENDENCE
     Dosage: (2 MG BID; SUBLINGUAL)
     Route: 060
     Dates: start: 20100601

REACTIONS (7)
  - BACK PAIN [None]
  - DIZZINESS [None]
  - DRUG HYPERSENSITIVITY [None]
  - HYPERHIDROSIS [None]
  - KIDNEY INFECTION [None]
  - MIGRAINE [None]
  - RENAL MASS [None]
